FAERS Safety Report 4579145-1 (Version None)
Quarter: 2005Q1

REPORT INFORMATION
  Report Type: 
  Country: None (occurrence: None)
  Receive Date: 20050121
  Receipt Date: 20041203
  Transmission Date: 20050727
  Serious: Yes (Other)
  Sender: FDA-Public Use
  Company Number: STA-AE-04-MTX-607

PATIENT
  Age: 84 Year
  Sex: Female

DRUGS (4)
  1. METHOTREXATE [Suspect]
     Dates: end: 20040101
  2. METHOTREXATE [Suspect]
     Dates: start: 20040101
  3. ENBREL [Suspect]
     Indication: PSORIATIC ARTHROPATHY
     Dosage: 25 MG 2X PER 1 WK, SC
     Route: 058
     Dates: start: 20031001, end: 20040101
  4. ENBREL [Suspect]
     Indication: PSORIATIC ARTHROPATHY
     Dosage: 25 MG 2X PER 1 WK, SC
     Route: 058
     Dates: start: 20040101

REACTIONS (2)
  - HERPES ZOSTER [None]
  - PAIN [None]
